FAERS Safety Report 8854470 (Version 1)
Quarter: 2012Q4

REPORT INFORMATION
  Report Type: Spontaneous
  Country: US (occurrence: None)
  Receive Date: 20121022
  Receipt Date: 20121022
  Transmission Date: 20130627
  Serious: Yes (Other)
  Sender: FDA-Public Use
  Company Number: None

PATIENT
  Age: 31 Year
  Sex: Female
  Weight: 81.65 kg

DRUGS (1)
  1. BUSPIRONE [Suspect]
     Dosage: One dose at bedtime
     Dates: start: 20121016, end: 20121018

REACTIONS (10)
  - Oedema peripheral [None]
  - Oedema peripheral [None]
  - Neck pain [None]
  - Pain in extremity [None]
  - Myalgia [None]
  - Arthralgia [None]
  - Vomiting [None]
  - Headache [None]
  - Dizziness [None]
  - Abdominal discomfort [None]
